FAERS Safety Report 4320803-1 (Version None)
Quarter: 2004Q1

REPORT INFORMATION
  Report Type: 
  Country: None (occurrence: None)
  Receive Date: 20040318
  Receipt Date: 20040315
  Transmission Date: 20041129
  Serious: Yes (Disabling)
  Sender: FDA-Public Use
  Company Number: FRWYE600424FEB04

PATIENT
  Age: 55 Year
  Sex: Male

DRUGS (4)
  1. RAPAMUNE [Suspect]
     Indication: PROPHYLAXIS AGAINST TRANSPLANT REJECTION
     Dosage: 6 MG 1X PER 1 DAY; ORAL
     Route: 048
     Dates: start: 20021013
  2. CELLCEPT [Suspect]
     Indication: PROPHYLAXIS AGAINST TRANSPLANT REJECTION
     Dosage: 1000 MG DAIL; ORAL
     Route: 048
     Dates: start: 20021013, end: 20030704
  3. PREDNISONE [Suspect]
     Indication: PROPHYLAXIS AGAINST TRANSPLANT REJECTION
     Dosage: 7.5 MG 1X PER 1 DAY; ORAL
     Route: 048
     Dates: start: 20021013, end: 20030701
  4. PREDNISONE [Suspect]
     Dosage: UNKNOWN; ORAL
     Route: 048
     Dates: start: 20030701

REACTIONS (4)
  - CHORIORETINITIS [None]
  - RETINAL DETACHMENT [None]
  - RETINAL PIGMENT EPITHELIOPATHY [None]
  - VISUAL ACUITY REDUCED [None]
